FAERS Safety Report 9468988 (Version 4)
Quarter: 2013Q4

REPORT INFORMATION
  Report Type: Spontaneous
  Country: VE (occurrence: VE)
  Receive Date: 20130821
  Receipt Date: 20131030
  Transmission Date: 20140711
  Serious: Yes (Hospitalization)
  Sender: FDA-Public Use
  Company Number: VE-BIOMARINAP-VE-2013-101351

PATIENT
  Age: 7 Year
  Sex: Female
  Weight: 18 kg

DRUGS (1)
  1. ALDURAZYME [Suspect]
     Indication: MUCOPOLYSACCHARIDOSIS I
     Dosage: 0.64 MG/KG, QW
     Route: 042
     Dates: start: 20130723

REACTIONS (7)
  - Hypersensitivity [Unknown]
  - Hypotension [Unknown]
  - Pallor [Unknown]
  - Rash [Unknown]
  - Cough [Unknown]
  - Hyperhidrosis [Unknown]
  - Abdominal pain [Unknown]
